FAERS Safety Report 19068498 (Version 1)
Quarter: 2021Q1

REPORT INFORMATION
  Report Type: Spontaneous
  Country: US (occurrence: US)
  Receive Date: 20210328
  Receipt Date: 20210328
  Transmission Date: 20210420
  Serious: Yes (Hospitalization, Disabling, Other)
  Sender: FDA-Public Use
  Company Number: None

PATIENT
  Age: 36 Year
  Sex: Male
  Weight: 81 kg

DRUGS (1)
  1. SUBLOCADE [Suspect]
     Active Substance: BUPRENORPHINE
     Indication: DRUG DEPENDENCE
     Dosage: ?          OTHER FREQUENCY:1 MONTH;?
     Route: 058
     Dates: start: 20200701, end: 20210222

REACTIONS (3)
  - Scar [None]
  - Infection [None]
  - Injection site reaction [None]

NARRATIVE: CASE EVENT DATE: 20210222
